FAERS Safety Report 21169186 (Version 2)
Quarter: 2022Q3

REPORT INFORMATION
  Report Type: Report from Study
  Country: US (occurrence: US)
  Receive Date: 20220804
  Receipt Date: 20220814
  Transmission Date: 20221027
  Serious: Yes (Other)
  Sender: FDA-Public Use
  Company Number: US-SUN PHARMACEUTICAL INDUSTRIES LTD-2022R1-347003

PATIENT

DRUGS (1)
  1. DOXYCYCLINE [Suspect]
     Active Substance: DOXYCYCLINE
     Indication: Aneurysmal bone cyst
     Dosage: UNK/EVERY 3 MONTHS
     Route: 065

REACTIONS (2)
  - Neoplasm progression [Unknown]
  - Treatment failure [Unknown]
